FAERS Safety Report 10655457 (Version 1)
Quarter: 2014Q4

REPORT INFORMATION
  Report Type: Spontaneous
  Country: US (occurrence: None)
  Receive Date: 20141205
  Receipt Date: 20141205
  Transmission Date: 20150529
  Serious: Yes (Other)
  Sender: FDA-Public Use
  Company Number: USA-2014110207

PATIENT
  Age: 71 Year
  Sex: Male
  Weight: 89.81 kg

DRUGS (13)
  1. ROPINIROLE(ROPINIROLE) [Concomitant]
  2. SIMVASTATIN(SIMVASTATIN) [Concomitant]
     Active Substance: SIMVASTATIN
  3. ZOMETA(ZOLDERONIC ACID) [Concomitant]
  4. PROCRIT(ERYTHROPOIETIN) [Concomitant]
  5. DEXAMETHASONE(DEXAMTHEASONE) [Concomitant]
  6. POMALYST [Suspect]
     Active Substance: POMALIDOMIDE
     Dosage: 4 MG, 21 IN 21 D, PO
     Route: 048
     Dates: start: 20141004
  7. ENALAPRIL(ENALAPRIL) [Concomitant]
  8. PLAVIX(CLOPIDOGREL BISULRATE) [Concomitant]
  9. ACYCLOVIR(ACICLOVIR) [Concomitant]
  10. VITAMINS(ERGOCALCIFEROL, ASCORBIC ACID, FOLIC ACID THIAMINE HYDROCHLORIDE, RETINOL, RIBOFLAVIN, NICOTINAMIDE, PANTHENOL) [Concomitant]
  11. SENOKOT(SENNOSIDE A+ B) [Concomitant]
  12. ASPIRIN(ACETYLSALICYLIC ACID) [Concomitant]
     Active Substance: ASPIRIN
  13. RANITIDINE(RANITIDINE) [Concomitant]

REACTIONS (2)
  - Haemoglobin decreased [None]
  - Neutrophil count decreased [None]

NARRATIVE: CASE EVENT DATE: 20141028
